FAERS Safety Report 12591643 (Version 1)
Quarter: 2016Q3

REPORT INFORMATION
  Report Type: Spontaneous
  Country: US (occurrence: None)
  Receive Date: 20160725
  Receipt Date: 20160725
  Transmission Date: 20161109
  Serious: No
  Sender: FDA-Public Use
  Company Number: None

PATIENT
  Age: 63 Year
  Sex: Female
  Weight: 68.04 kg

DRUGS (5)
  1. FAMOTIDINE. [Concomitant]
     Active Substance: FAMOTIDINE
  2. LISINOPRIL/HCTC [Concomitant]
  3. IBUPROFEN. [Concomitant]
     Active Substance: IBUPROFEN
  4. ALKA-SELTZER CHEWS [Concomitant]
  5. FLUOROURACIL. [Suspect]
     Active Substance: FLUOROURACIL
     Indication: ACTINIC KERATOSIS
     Dosage: TWICE A DAY APPLIED TO A SURFACE, USUALLY THE SKIN
     Route: 061
     Dates: start: 20160626, end: 20160721

REACTIONS (2)
  - Eye swelling [None]
  - Alopecia [None]

NARRATIVE: CASE EVENT DATE: 20160718
